FAERS Safety Report 25716852 (Version 1)
Quarter: 2025Q3

REPORT INFORMATION
  Report Type: Spontaneous
  Country: US (occurrence: US)
  Receive Date: 20250822
  Receipt Date: 20250822
  Transmission Date: 20251021
  Serious: No
  Sender: BIOGEN
  Company Number: US-BIOGEN-2025BI01321315

PATIENT
  Sex: Male

DRUGS (4)
  1. TYSABRI [Suspect]
     Active Substance: NATALIZUMAB
     Indication: Secondary progressive multiple sclerosis
     Route: 050
  2. BACLOFEN [Concomitant]
     Active Substance: BACLOFEN
     Indication: Product used for unknown indication
     Route: 050
  3. LISINOPRIL [Concomitant]
     Active Substance: LISINOPRIL
     Indication: Product used for unknown indication
     Route: 050
  4. TYLENOL [Concomitant]
     Active Substance: ACETAMINOPHEN
     Indication: Product used for unknown indication
     Route: 050

REACTIONS (1)
  - Treatment failure [Unknown]
